FAERS Safety Report 12155912 (Version 1)
Quarter: 2016Q1

REPORT INFORMATION
  Report Type: Spontaneous
  Country: US (occurrence: US)
  Receive Date: 20160307
  Receipt Date: 20160307
  Transmission Date: 20160526
  Serious: Yes (Hospitalization)
  Sender: FDA-Public Use
  Company Number: US-SA-2016SA043730

PATIENT
  Age: 47 Year
  Sex: Female

DRUGS (1)
  1. ZOLPIDEM TARTRATE EXTENDED RELEASE [Suspect]
     Active Substance: ZOLPIDEM TARTRATE
     Indication: INSOMNIA
     Route: 048

REACTIONS (8)
  - Hypoaesthesia [Not Recovered/Not Resolved]
  - Chest pain [Not Recovered/Not Resolved]
  - Overdose [Unknown]
  - Dehydration [Not Recovered/Not Resolved]
  - Headache [Not Recovered/Not Resolved]
  - Feeling abnormal [Not Recovered/Not Resolved]
  - Unevaluable event [Not Recovered/Not Resolved]
  - Weight increased [Not Recovered/Not Resolved]
